FAERS Safety Report 5836752-3 (Version None)
Quarter: 2008Q3

REPORT INFORMATION
  Report Type: 
  Country: None (occurrence: None)
  Receive Date: 20080806
  Receipt Date: 20080806
  Transmission Date: 20090109
  Serious: Yes (Other)
  Sender: FDA-Public Use
  Company Number: None

PATIENT
  Sex: Male
  Weight: 120.2032 kg

DRUGS (1)
  1. ZYRTEC [Suspect]
     Indication: SEASONAL ALLERGY
     Dosage: 20MG DAILY PO
     Route: 048
     Dates: start: 20070801, end: 20080701

REACTIONS (8)
  - DRUG WITHDRAWAL SYNDROME [None]
  - HEADACHE [None]
  - INFLAMMATION [None]
  - NAUSEA [None]
  - PRURITUS [None]
  - SKIN IRRITATION [None]
  - SWELLING [None]
  - URTICARIA [None]
